FAERS Safety Report 9008842 (Version 1)
Quarter: 2013Q1

REPORT INFORMATION
  Report Type: Report from Study
  Country: PL (occurrence: PL)
  Receive Date: 20130111
  Receipt Date: 20130111
  Transmission Date: 20140127
  Serious: Yes (Death, Hospitalization)
  Sender: FDA-Public Use
  Company Number: PL-AMGEN-POLNI2013001391

PATIENT
  Age: 70 Year
  Sex: Male

DRUGS (3)
  1. DARBEPOETIN ALFA [Suspect]
     Indication: ANAEMIA OF MALIGNANT DISEASE
     Dosage: UNK UNK, Q3WK
     Route: 058
     Dates: start: 20121220, end: 20121220
  2. PEMETREXED [Concomitant]
     Dosage: 924 MG, Q3WK
     Route: 042
     Dates: start: 20121219, end: 20121219
  3. PLATINUM [Concomitant]
     Dosage: 138 MG, Q3WK
     Route: 042
     Dates: start: 20121219, end: 20121219

REACTIONS (1)
  - Pulmonary embolism [Fatal]
